FAERS Safety Report 8042247-1 (Version None)
Quarter: 2012Q1

REPORT INFORMATION
  Report Type: 
  Country: None (occurrence: None)
  Receive Date: 20120112
  Receipt Date: 20111226
  Transmission Date: 20120608
  Serious: Yes (Hospitalization)
  Sender: FDA-Public Use
  Company Number: JP-ROCHE-1029233

PATIENT
  Sex: Female

DRUGS (21)
  1. ACTEMRA [Suspect]
     Route: 041
     Dates: start: 20090731, end: 20090731
  2. ACTEMRA [Suspect]
     Route: 041
     Dates: start: 20100112, end: 20100112
  3. PREDNISOLONE [Concomitant]
     Route: 048
     Dates: start: 20100110, end: 20100111
  4. PREDNISOLONE [Concomitant]
     Route: 048
     Dates: start: 20100112
  5. ACTEMRA [Suspect]
     Route: 041
     Dates: start: 20091102, end: 20091102
  6. ACTEMRA [Suspect]
     Route: 041
     Dates: start: 20100227, end: 20101029
  7. PREDNISOLONE [Concomitant]
     Route: 048
     Dates: start: 20090930, end: 20091102
  8. ACTEMRA [Suspect]
     Route: 041
     Dates: start: 20101227, end: 20110430
  9. ACTEMRA [Suspect]
     Route: 041
     Dates: start: 20090901, end: 20090901
  10. ACTEMRA [Suspect]
     Route: 041
     Dates: start: 20091130, end: 20091130
  11. ACTEMRA [Suspect]
     Route: 041
     Dates: start: 20100202, end: 20100202
  12. PREDNISOLONE [Concomitant]
     Indication: RHEUMATOID ARTHRITIS
     Route: 048
     Dates: end: 20090730
  13. PREDNISOLONE [Concomitant]
     Route: 048
     Dates: start: 20091103, end: 20091130
  14. PREDNISOLONE [Concomitant]
     Route: 048
     Dates: start: 20091201, end: 20100109
  15. ACTEMRA [Suspect]
     Indication: RHEUMATOID ARTHRITIS
     Route: 041
     Dates: start: 20090704, end: 20090704
  16. ACTEMRA [Suspect]
     Route: 041
     Dates: start: 20090929, end: 20090929
  17. ACTEMRA [Suspect]
     Route: 041
     Dates: start: 20101202, end: 20101202
  18. PREDNISOLONE [Concomitant]
     Route: 048
     Dates: start: 20090731, end: 20090901
  19. PREDNISOLONE [Concomitant]
     Route: 048
     Dates: start: 20090902, end: 20090929
  20. CELECOXIB [Concomitant]
     Indication: RHEUMATOID ARTHRITIS
     Route: 048
  21. RHEUMATREX [Concomitant]
     Indication: RHEUMATOID ARTHRITIS
     Route: 048

REACTIONS (1)
  - CEREBRAL HAEMORRHAGE [None]
